FAERS Safety Report 5285745-6 (Version None)
Quarter: 2007Q1

REPORT INFORMATION
  Report Type: 
  Country: None (occurrence: None)
  Receive Date: 20070126
  Receipt Date: 20061219
  Transmission Date: 20070707
  Serious: No
  Sender: FDA-Public Use
  Company Number: 2006CT001178

PATIENT
  Age: 80 Year
  Sex: Female
  Weight: 57 kg

DRUGS (11)
  1. VENTAVIS [Suspect]
     Indication: PULMONARY HYPERTENSION
     Dosage: 5 UG;6XD;INH
     Route: 055
     Dates: start: 20051010, end: 20051014
  2. IRON [Concomitant]
  3. URSO [Concomitant]
  4. PAXIL [Concomitant]
  5. VERAPAMIL [Concomitant]
  6. AMBIEN [Concomitant]
  7. MIACALCIN [Concomitant]
  8. RESTORIL [Concomitant]
  9. CARDIZEM [Concomitant]
  10. CARAFATE [Concomitant]
  11. TRACLEER [Concomitant]

REACTIONS (3)
  - CONTUSION [None]
  - HYPOTENSION [None]
  - SYNCOPE [None]
